FAERS Safety Report 4485184-1 (Version None)
Quarter: 2004Q4

REPORT INFORMATION
  Report Type: 
  Country: None (occurrence: None)
  Receive Date: 20041026
  Receipt Date: 20040305
  Transmission Date: 20050328
  Serious: No
  Sender: FDA-Public Use
  Company Number: US-BRISTOL-MYERS SQUIBB COMPANY-12525317

PATIENT
  Age: 72 Year
  Sex: Female
  Weight: 91 kg

DRUGS (7)
  1. GLUCOPHAGE XR [Suspect]
     Indication: DIABETES MELLITUS
     Dosage: THERAPY DURATION: ^A COUPLE OF YEARS^
     Route: 048
  2. VERAPAMIL [Concomitant]
  3. POTASSIUM [Concomitant]
  4. NEXIUM [Concomitant]
  5. LASIX [Concomitant]
  6. DIGOXIN [Concomitant]
  7. LIPITOR [Concomitant]

REACTIONS (2)
  - BLOOD GLUCOSE INCREASED [None]
  - DIARRHOEA [None]
